FAERS Safety Report 23607911 (Version 1)
Quarter: 2024Q1

REPORT INFORMATION
  Report Type: Spontaneous
  Country: DE (occurrence: DE)
  Receive Date: 20240307
  Receipt Date: 20240307
  Transmission Date: 20240409
  Serious: Yes (Other)
  Sender: FDA-Public Use
  Company Number: DE-TEVA-2023-DE-2937229

PATIENT
  Age: 29 Year
  Sex: Female

DRUGS (2)
  1. GLATIRAMER [Suspect]
     Active Substance: GLATIRAMER
     Indication: Multiple sclerosis
     Dosage: 40 MILLIGRAM, 3XW
     Route: 058
     Dates: start: 202105, end: 202211
  2. GLATIRAMER [Suspect]
     Active Substance: GLATIRAMER
     Dosage: 40 MILLIGRAM, 3XW
     Route: 058
     Dates: start: 202308, end: 202309

REACTIONS (8)
  - Optic neuritis [Unknown]
  - Multiple sclerosis relapse [Unknown]
  - Drug intolerance [Unknown]
  - Sensation of foreign body [Unknown]
  - Live birth [Recovered/Resolved]
  - Dyspnoea [Unknown]
  - Flushing [Unknown]
  - Maternal exposure during pregnancy [Recovered/Resolved]
